FAERS Safety Report 11789121 (Version 2)
Quarter: 2016Q1

REPORT INFORMATION
  Report Type: Report from Study
  Country: US (occurrence: US)
  Receive Date: 20151201
  Receipt Date: 20160119
  Transmission Date: 20160525
  Serious: Yes (Hospitalization)
  Sender: FDA-Public Use
  Company Number: US-AUROBINDO-AUR-APU-2015-10478

PATIENT
  Age: 59 Year
  Sex: Female
  Weight: 46 kg

DRUGS (1)
  1. RIBAVIRIN TABLET [Suspect]
     Active Substance: RIBAVIRIN
     Indication: HEPATITIS C
     Dosage: UNK
     Route: 048
     Dates: start: 20150727, end: 20150915

REACTIONS (11)
  - Ammonia increased [Unknown]
  - Pyrexia [Unknown]
  - Drug dose omission [Recovered/Resolved]
  - Encephalopathy [Unknown]
  - Blood lactic acid increased [Unknown]
  - Acute kidney injury [Recovered/Resolved]
  - Anaemia [Unknown]
  - Confusional state [Recovered/Resolved]
  - Haemoglobin decreased [Unknown]
  - Seizure [Recovered/Resolved]
  - Ascites [Unknown]

NARRATIVE: CASE EVENT DATE: 201509
